FAERS Safety Report 5801094-9 (Version None)
Quarter: 2008Q3

REPORT INFORMATION
  Report Type: 
  Country: None (occurrence: None)
  Receive Date: 20080707
  Receipt Date: 20080627
  Transmission Date: 20090109
  Serious: Yes (Hospitalization)
  Sender: FDA-Public Use
  Company Number: FR-BRISTOL-MYERS SQUIBB COMPANY-14249528

PATIENT
  Age: 71 Year
  Sex: Male

DRUGS (8)
  1. GLUCOPHAGE [Suspect]
     Dosage: 2 DOSAGE FORM PER DAY
     Route: 048
     Dates: start: 20071001, end: 20080325
  2. NOVONORM [Concomitant]
  3. IRBESARTAN [Concomitant]
  4. VENTOLIN [Concomitant]
  5. ALLOPURINOL [Concomitant]
  6. TAHOR [Concomitant]
  7. PROPOXYPHENE HCL AND ACETAMINOPHEN [Concomitant]
  8. DAFLON [Concomitant]

REACTIONS (3)
  - HYPERKALAEMIA [None]
  - LACTIC ACIDOSIS [None]
  - RENAL FAILURE ACUTE [None]
